FAERS Safety Report 7186859-6 (Version None)
Quarter: 2010Q4

REPORT INFORMATION
  Report Type: 
  Country: None (occurrence: None)
  Receive Date: 20101222
  Receipt Date: 20101217
  Transmission Date: 20110411
  Serious: Yes (Hospitalization)
  Sender: FDA-Public Use
  Company Number: B0689853A

PATIENT
  Sex: Female

DRUGS (5)
  1. ZOPHREN [Suspect]
     Dosage: 8MG SINGLE DOSE
     Route: 042
     Dates: start: 20101130, end: 20101130
  2. AVASTIN [Suspect]
     Dosage: 1095MG SINGLE DOSE
     Route: 042
     Dates: start: 20101130, end: 20101130
  3. CAELYX [Suspect]
     Dosage: 51.6MG SINGLE DOSE
     Route: 042
     Dates: start: 20101130, end: 20101130
  4. EZETROL [Concomitant]
  5. CARBOPLATIN [Concomitant]

REACTIONS (6)
  - ABDOMINAL PAIN [None]
  - BACK PAIN [None]
  - ERYTHEMA [None]
  - FEELING HOT [None]
  - HYPERSENSITIVITY [None]
  - HYPOTENSION [None]
